FAERS Safety Report 4318215-X (Version None)
Quarter: 2004Q1

REPORT INFORMATION
  Report Type: 
  Country: None (occurrence: None)
  Receive Date: 20040315
  Receipt Date: 20040227
  Transmission Date: 20041129
  Serious: Yes (Death)
  Sender: FDA-Public Use
  Company Number: 175870

PATIENT
  Age: 57 Year
  Sex: Male

DRUGS (1)
  1. AVONEX [Suspect]
     Indication: MULTIPLE SCLEROSIS
     Dosage: 30 MCG QW IM
     Route: 030
     Dates: start: 20000901, end: 20030601

REACTIONS (6)
  - AMYLOIDOSIS [None]
  - CARDIAC AMYLOIDOSIS [None]
  - CARDIAC ARREST [None]
  - CARDIOMEGALY [None]
  - LIVER DISORDER [None]
  - RENAL AMYLOIDOSIS [None]
